FAERS Safety Report 10580976 (Version 2)
Quarter: 2016Q4

REPORT INFORMATION
  Report Type: Spontaneous
  Country: DK (occurrence: DK)
  Receive Date: 20141113
  Receipt Date: 20161020
  Transmission Date: 20170206
  Serious: No
  Sender: FDA-Public Use
  Company Number: DK-RANBAXY-2014R1-87635

PATIENT
  Age: 59 Year
  Sex: Male

DRUGS (2)
  1. FLUCONAZOLE. [Suspect]
     Active Substance: FLUCONAZOLE
     Indication: ANTIFUNGAL TREATMENT
     Dosage: 800 MG, DAILY
     Route: 065
  2. FLUCONAZOLE. [Suspect]
     Active Substance: FLUCONAZOLE
     Dosage: 400 MG, DAILY
     Route: 065

REACTIONS (1)
  - Myalgia [Unknown]
